FAERS Safety Report 6088355-6 (Version None)
Quarter: 2009Q1

REPORT INFORMATION
  Report Type: 
  Country: None (occurrence: None)
  Receive Date: 20090219
  Receipt Date: 20090206
  Transmission Date: 20090719
  Serious: Yes (Other)
  Sender: FDA-Public Use
  Company Number: 138474

PATIENT
  Age: 48 Year
  Sex: Female

DRUGS (1)
  1. METHOTREXATE [Suspect]
     Indication: RHEUMATOID ARTHRITIS
     Dosage: WEEKLY,

REACTIONS (3)
  - BENIGN NEOPLASM [None]
  - MALIGNANT PERITONEAL NEOPLASM [None]
  - MALIGNANT TRANSFORMATION [None]
